FAERS Safety Report 8519485-4 (Version None)
Quarter: 2012Q3

REPORT INFORMATION
  Report Type: 
  Country: None (occurrence: None)
  Receive Date: 20120718
  Receipt Date: 20120705
  Transmission Date: 20120928
  Serious: No
  Sender: FDA-Public Use
  Company Number: US-ASTRAZENECA-2011SE61911

PATIENT
  Age: 64 Year
  Sex: Male

DRUGS (2)
  1. NEXIUM [Suspect]
     Dosage: TAKES EXTRA CAPSULE AT NIGHT WHEN HE HAS BAD ACID REFLUX
     Route: 048
  2. NEXIUM [Suspect]
     Route: 048

REACTIONS (2)
  - MULTIPLE SCLEROSIS [None]
  - GASTROOESOPHAGEAL REFLUX DISEASE [None]
